FAERS Safety Report 5582716-7 (Version None)
Quarter: 2008Q1

REPORT INFORMATION
  Report Type: 
  Country: None (occurrence: None)
  Receive Date: 20080107
  Receipt Date: 20071227
  Transmission Date: 20080703
  Serious: Yes (Death)
  Sender: FDA-Public Use
  Company Number: US-BRISTOL-MYERS SQUIBB COMPANY-14005318

PATIENT
  Age: 46 Year
  Sex: Male

DRUGS (8)
  1. ERBITUX [Suspect]
     Indication: NEOPLASM MALIGNANT
     Dosage: STARTING DOSE WITH 700MG
     Route: 042
     Dates: start: 20070702, end: 20070702
  2. OXYCODONE HCL [Concomitant]
  3. AMITRIPTYLINE HCL [Concomitant]
  4. MAXZIDE [Concomitant]
  5. REGLAN [Concomitant]
  6. PROZAC [Concomitant]
  7. LAMICTAL [Concomitant]
  8. FENTANYL [Concomitant]

REACTIONS (5)
  - CONFUSIONAL STATE [None]
  - DEHYDRATION [None]
  - DEPRESSION [None]
  - NAUSEA [None]
  - RESPIRATORY ARREST [None]
